FAERS Safety Report 5574538-8 (Version None)
Quarter: 2007Q4

REPORT INFORMATION
  Report Type: 
  Country: None (occurrence: None)
  Receive Date: 20071221
  Receipt Date: 20071207
  Transmission Date: 20080405
  Serious: Yes (Other)
  Sender: FDA-Public Use
  Company Number: 2007US003101

PATIENT
  Age: 45 Year
  Sex: Male

DRUGS (2)
  1. PROGRAF [Suspect]
     Indication: IMMUNOSUPPRESSION
     Dosage: 7 MG, BID, ORAL; 5 MG, BID, ORAL; 4 MG, BID, ORAL; 3 MG, BID, ORAL
     Route: 048
  2. CORTICOSTEROID NOS                (CORTICOSTEROID NOS) [Concomitant]

REACTIONS (14)
  - BLOOD CHOLESTEROL DECREASED [None]
  - CHRONIC INFLAMMATORY DEMYELINATING POLYRADICULONEUROPATHY [None]
  - CYTOMEGALOVIRUS ANTIBODY POSITIVE [None]
  - DEMYELINATING POLYNEUROPATHY [None]
  - DIARRHOEA [None]
  - FATIGUE [None]
  - HEADACHE [None]
  - IMMUNOSUPPRESSANT DRUG LEVEL DECREASED [None]
  - LIVER TRANSPLANT REJECTION [None]
  - MUSCLE ATROPHY [None]
  - NEUROTOXICITY [None]
  - PERIPHERAL SENSORIMOTOR NEUROPATHY [None]
  - TREMOR [None]
  - WEIGHT DECREASED [None]
